FAERS Safety Report 5233992-1 (Version None)
Quarter: 2007Q1

REPORT INFORMATION
  Report Type: 
  Country: None (occurrence: None)
  Receive Date: 20061204
  Receipt Date: 20060908
  Transmission Date: 20070707
  Serious: No
  Sender: FDA-Public Use
  Company Number: 2006-BP-07182BP

PATIENT
  Age: 71 Year
  Sex: Male

DRUGS (9)
  1. SPIRIVA [Suspect]
     Indication: CHRONIC OBSTRUCTIVE PULMONARY DISEASE
     Dosage: 18 MCG (18 MCG,1 IN 1 D),IH
     Route: 055
     Dates: start: 20051101
  2. SPIRIVA [Suspect]
     Indication: PULMONARY SARCOIDOSIS
     Dosage: 18 MCG (18 MCG,1 IN 1 D),IH
     Route: 055
     Dates: start: 20051101
  3. SPIRIVA [Suspect]
  4. ATROVENT INHALATION AEROSOL HFA (IPRATROPIUM BROMIDE) (IPRATROPIUM-BR) [Concomitant]
  5. FLOVENT [Concomitant]
  6. DILANTIN INSTATAB (DILTIAZEM) [Concomitant]
  7. LIPITOR [Concomitant]
  8. CARDURA [Concomitant]
  9. ATIVAN (LORAZEPM) [Concomitant]

REACTIONS (1)
  - DYSPNOEA [None]
